FAERS Safety Report 4884093-3 (Version None)
Quarter: 2006Q1

REPORT INFORMATION
  Report Type: 
  Country: None (occurrence: None)
  Receive Date: 20060118
  Receipt Date: 20050914
  Transmission Date: 20060701
  Serious: Yes (Hospitalization, Disabling, Other)
  Sender: FDA-Public Use
  Company Number: US-MERCK-0509USA02116

PATIENT
  Age: 50 Year
  Sex: Male
  Weight: 91 kg

DRUGS (7)
  1. VIOXX [Suspect]
     Indication: OSTEOARTHRITIS
     Route: 048
     Dates: start: 20000901, end: 20040501
  2. VIOXX [Suspect]
     Route: 048
     Dates: start: 20000901, end: 20040501
  3. NEURONTIN [Concomitant]
     Indication: ARTHRITIS
     Route: 065
     Dates: start: 20000901
  4. NEURONTIN [Concomitant]
     Indication: NERVE INJURY
     Route: 065
     Dates: start: 20000901
  5. ULTRAM [Concomitant]
     Indication: ARTHRITIS
     Route: 065
     Dates: start: 20000901
  6. ULTRAM [Concomitant]
     Indication: NERVE INJURY
     Route: 065
     Dates: start: 20000901
  7. FLEXERIL [Concomitant]
     Route: 065

REACTIONS (15)
  - ABDOMINAL PAIN [None]
  - ARTHROPATHY [None]
  - BLOOD TRIGLYCERIDES INCREASED [None]
  - CARDIAC FAILURE CONGESTIVE [None]
  - CORONARY ARTERY DISEASE [None]
  - DIABETES MELLITUS [None]
  - HYPERGLYCAEMIA [None]
  - HYPERLIPIDAEMIA [None]
  - HYPERTENSION [None]
  - ISCHAEMIC CARDIOMYOPATHY [None]
  - MYOCARDIAL INFARCTION [None]
  - OBESITY [None]
  - PANCREATITIS [None]
  - PANCREATITIS ACUTE [None]
  - SPINAL COLUMN STENOSIS [None]
